FAERS Safety Report 13472474 (Version 5)
Quarter: 2017Q3

REPORT INFORMATION
  Report Type: Report from Study
  Country: US (occurrence: US)
  Receive Date: 20170424
  Receipt Date: 20170705
  Transmission Date: 20171127
  Serious: Yes (Other)
  Sender: FDA-Public Use
  Company Number: US-PFIZER INC-2017135668

PATIENT
  Age: 74 Year
  Sex: Female

DRUGS (3)
  1. IBRANCE [Suspect]
     Active Substance: PALBOCICLIB
     Dosage: 125 CYCLIC (DAILY; 3 WEEKS ON/ 1 WEEK OFF)
     Route: 048
     Dates: start: 20170426
  2. IBRANCE [Suspect]
     Active Substance: PALBOCICLIB
     Indication: BREAST CANCER
     Dosage: 125 MG, CYCLIC (DAILY; 3 WEEKS ON/ 1 WEEK OFF)
     Route: 048
     Dates: start: 20170325, end: 20170421
  3. ARIMIDEX [Concomitant]
     Active Substance: ANASTROZOLE
     Dosage: UNK

REACTIONS (11)
  - Fatigue [Not Recovered/Not Resolved]
  - Irritability [Unknown]
  - Bone marrow failure [Not Recovered/Not Resolved]
  - Hot flush [Unknown]
  - Oesophageal pain [Unknown]
  - Alopecia [Not Recovered/Not Resolved]
  - Dyspepsia [Unknown]
  - Poor quality sleep [Recovered/Resolved]
  - Pain [Not Recovered/Not Resolved]
  - Product use in unapproved indication [Unknown]
  - Diarrhoea [Unknown]
